FAERS Safety Report 5141904-4 (Version None)
Quarter: 2006Q4

REPORT INFORMATION
  Report Type: 
  Country: None (occurrence: None)
  Receive Date: 20060919
  Receipt Date: 20060622
  Transmission Date: 20070319
  Serious: No
  Sender: FDA-Public Use
  Company Number: 2006US001169

PATIENT
  Age: 72 Year
  Sex: Female
  Weight: 59 kg

DRUGS (3)
  1. VESICARE [Suspect]
     Indication: URGE INCONTINENCE
     Dosage: 5 MG, UID/QD, ORAL
     Route: 048
  2. SYNTHROID [Concomitant]
  3. FOSAMAX [Concomitant]

REACTIONS (2)
  - HOT FLUSH [None]
  - HYPERHIDROSIS [None]
